FAERS Safety Report 24640024 (Version 1)
Quarter: 2024Q4

REPORT INFORMATION
  Report Type: Spontaneous
  Country: US (occurrence: US)
  Receive Date: 20241120
  Receipt Date: 20241120
  Transmission Date: 20250114
  Serious: Yes (Life-Threatening, Hospitalization, Other)
  Sender: SANDOZ
  Company Number: US-002147023-PHHY2012US067107

PATIENT
  Age: 8 Year
  Sex: Male

DRUGS (4)
  1. CYCLOSPORINE [Suspect]
     Active Substance: CYCLOSPORINE
     Indication: Immunosuppressant drug therapy
     Dosage: 125 MG, BID
     Route: 065
  2. MYCOPHENOLATE MOFETIL [Suspect]
     Active Substance: MYCOPHENOLATE MOFETIL
     Indication: Immunosuppressant drug therapy
     Dosage: 500 MG, BID
     Route: 065
  3. PREDNISONE [Suspect]
     Active Substance: PREDNISONE
     Indication: Immunosuppressant drug therapy
     Dosage: 5 MG, QD
     Route: 065
  4. CEFADROXIL [Concomitant]
     Active Substance: CEFADROXIL
     Indication: Product used for unknown indication
     Dosage: 250 MG, BID
     Route: 065

REACTIONS (25)
  - Hypoalbuminaemia [Recovered/Resolved]
  - Myelosuppression [Recovering/Resolving]
  - Post transplant lymphoproliferative disorder [Recovered/Resolved]
  - Lymphadenopathy [Recovered/Resolved]
  - Ascites [Recovered/Resolved]
  - Pleural effusion [Recovered/Resolved]
  - Leukopenia [Recovered/Resolved]
  - Thrombocytopenia [Recovered/Resolved]
  - Normocytic anaemia [Recovered/Resolved]
  - Hyponatraemia [Recovered/Resolved]
  - Hyperkalaemia [Recovered/Resolved]
  - Lymph node pain [Recovered/Resolved]
  - Lymphadenopathy mediastinal [Recovered/Resolved]
  - Epstein-Barr virus infection [Recovered/Resolved]
  - Pyrexia [Recovered/Resolved]
  - Cat scratch disease [Recovered/Resolved]
  - Papule [Recovered/Resolved]
  - Erythema [Recovered/Resolved]
  - Bacillary angiomatosis [Recovered/Resolved]
  - Blood urea increased [Recovered/Resolved]
  - Blood creatinine increased [Recovered/Resolved]
  - PCO2 decreased [Recovered/Resolved]
  - Blood cadmium decreased [Recovered/Resolved]
  - Blood magnesium decreased [Recovered/Resolved]
  - Blood lactate dehydrogenase increased [Recovered/Resolved]
